FAERS Safety Report 18325797 (Version 1)
Quarter: 2020Q3

REPORT INFORMATION
  Report Type: Spontaneous
  Country: CN (occurrence: CN)
  Receive Date: 20200929
  Receipt Date: 20200929
  Transmission Date: 20201103
  Serious: Yes (Hospitalization)
  Sender: FDA-Public Use
  Company Number: CN-OTSUKA-2020_023360

PATIENT
  Age: 43 Year
  Sex: Female
  Weight: 44 kg

DRUGS (1)
  1. ABILIFY [Suspect]
     Active Substance: ARIPIPRAZOLE
     Indication: SCHIZOPHRENIA
     Dosage: 20 MG, QD
     Route: 048
     Dates: start: 20200828, end: 20200903

REACTIONS (2)
  - Incorrect dose administered [Unknown]
  - Optic nerve injury [Recovering/Resolving]

NARRATIVE: CASE EVENT DATE: 20200828
